FAERS Safety Report 21091710 (Version 1)
Quarter: 2022Q3

REPORT INFORMATION
  Report Type: Spontaneous
  Country: US (occurrence: US)
  Receive Date: 20220717
  Receipt Date: 20220717
  Transmission Date: 20221026
  Serious: No
  Sender: FDA-Public Use
  Company Number: US-GALDERMA-US2022008586

PATIENT

DRUGS (4)
  1. PROACTIV MD ADAPALENE ACNE TREATMENT [Suspect]
     Active Substance: ADAPALENE
     Indication: Product used for unknown indication
     Dosage: 1 DOSAGE FORM, QD, USED ONCE AS INSTRUCTED
     Route: 061
     Dates: start: 20220612
  2. Proactiv MD Ultra Gentle Cleanser [Concomitant]
     Indication: Product used for unknown indication
     Dosage: 1 DOSAGE FORM, QD, USED ONCE AS INSTRUCTED
     Route: 061
     Dates: start: 20220612
  3. Proactiv MD Ultra Hydrating Moisturizer [Concomitant]
     Indication: Product used for unknown indication
     Dosage: 1 DOSAGE FORM, QD, USED ONCE AS INSTRUCTED
     Route: 061
     Dates: start: 20220612
  4. Proactiv Post Acne Scar Gel [Concomitant]
     Indication: Product used for unknown indication
     Dosage: 1 DOSAGE FORM, QD, USED ONCE AS INSTRUCTED
     Route: 061
     Dates: start: 20220612

REACTIONS (3)
  - Skin burning sensation [Unknown]
  - Pruritus [Unknown]
  - Dry skin [Unknown]

NARRATIVE: CASE EVENT DATE: 20220612
